FAERS Safety Report 9781580 (Version 1)
Quarter: 2013Q4

REPORT INFORMATION
  Report Type: Spontaneous
  Country: US (occurrence: None)
  Receive Date: 20131223
  Receipt Date: 20131223
  Transmission Date: 20140711
  Serious: Yes (Life-Threatening, Hospitalization)
  Sender: FDA-Public Use
  Company Number: None

PATIENT
  Age: 53 Year
  Sex: Male
  Weight: 97 kg

DRUGS (1)
  1. METOPROLOL [Suspect]
     Indication: ATRIAL FIBRILLATION
     Dosage: 1/2 TAB  BID  PO
     Route: 048
     Dates: start: 20110407, end: 20110408

REACTIONS (3)
  - Palpitations [None]
  - Bradycardia [None]
  - Atrioventricular block [None]
